FAERS Safety Report 25395829 (Version 2)
Quarter: 2025Q2

REPORT INFORMATION
  Report Type: Report from Study
  Country: US (occurrence: US)
  Receive Date: 20250604
  Receipt Date: 20250613
  Transmission Date: 20250717
  Serious: Yes (Death, Other)
  Sender: ACADIA PHARMACEUTICALS
  Company Number: US-ACADIA PHARMACEUTICALS INC.-ACA-2025-PIM-006223

PATIENT
  Sex: Male

DRUGS (25)
  1. NUPLAZID [Suspect]
     Active Substance: PIMAVANSERIN TARTRATE
     Indication: Parkinson^s disease
     Dosage: 34 MILLIGRAM, QD
     Route: 048
     Dates: start: 20241008, end: 20250522
  2. CARVEDILOL [Concomitant]
     Active Substance: CARVEDILOL
  3. DESVENLAFAXINE SUCCINATE [Concomitant]
     Active Substance: DESVENLAFAXINE SUCCINATE
  4. ONDANSETRON [Concomitant]
     Active Substance: ONDANSETRON
  5. PANTOPRAZOLE [Concomitant]
     Active Substance: PANTOPRAZOLE
  6. ASPIRIN [Concomitant]
     Active Substance: ASPIRIN
  7. BUPROPION [Concomitant]
     Active Substance: BUPROPION
  8. CARBIDOPA\LEVODOPA [Concomitant]
     Active Substance: CARBIDOPA\LEVODOPA
  9. FOLIC ACID [Concomitant]
     Active Substance: FOLIC ACID
  10. HYDROXYZINE HYDROCHLORIDE [Concomitant]
     Active Substance: HYDROXYZINE HYDROCHLORIDE
  11. OMEPRAZOLE [Concomitant]
     Active Substance: OMEPRAZOLE
  12. ROSUVASTATIN [Concomitant]
     Active Substance: ROSUVASTATIN
  13. VITAMIN B12 [Concomitant]
     Active Substance: CYANOCOBALAMIN
  14. VITAMIN D3 [Concomitant]
     Active Substance: CHOLECALCIFEROL
  15. OMEPRAZOLE [Concomitant]
     Active Substance: OMEPRAZOLE
  16. LACTULOSE [Concomitant]
     Active Substance: LACTULOSE
  17. PEPCID [Concomitant]
     Active Substance: FAMOTIDINE
  18. COREG [Concomitant]
     Active Substance: CARVEDILOL
  19. ZOFRAN [Concomitant]
     Active Substance: ONDANSETRON HYDROCHLORIDE
  20. VITAMIN B12 [Concomitant]
     Active Substance: CYANOCOBALAMIN
  21. THIAMINE [Concomitant]
     Active Substance: THIAMINE
  22. ASPIRIN [Concomitant]
     Active Substance: ASPIRIN
  23. HYDROXYZINE [Concomitant]
     Active Substance: HYDROXYZINE HYDROCHLORIDE
  24. SINEMET [Concomitant]
     Active Substance: CARBIDOPA\LEVODOPA
  25. PRISTIQ EXTENDED-RELEASE [Concomitant]
     Active Substance: DESVENLAFAXINE SUCCINATE

REACTIONS (3)
  - Parkinson^s disease [Fatal]
  - Alcohol use disorder [Fatal]
  - Liver disorder [Fatal]
